FAERS Safety Report 5989355-4 (Version None)
Quarter: 2008Q4

REPORT INFORMATION
  Report Type: 
  Country: None (occurrence: None)
  Receive Date: 20081205
  Receipt Date: 20081121
  Transmission Date: 20090506
  Serious: Yes (Hospitalization)
  Sender: FDA-Public Use
  Company Number: MPS1-1000135

PATIENT
  Age: 3 Year
  Sex: Male
  Weight: 16 kg

DRUGS (1)
  1. ALDURAZYME [Suspect]
     Indication: MUCOPOLYSACCHARIDOSIS I
     Dosage: 1500 U, QW, INTRAVENOUS
     Route: 042
     Dates: start: 20061115, end: 20081024

REACTIONS (3)
  - HYPERSENSITIVITY [None]
  - PYREXIA [None]
  - RESTLESSNESS [None]
